FAERS Safety Report 15936274 (Version 1)
Quarter: 2019Q1

REPORT INFORMATION
  Report Type: Spontaneous
  Country: US (occurrence: US)
  Receive Date: 20190116
  Receipt Date: 20190116
  Transmission Date: 20190417
  Serious: No
  Sender: FDA-Public Use
  Company Number: None

PATIENT
  Age: 55 Year
  Sex: Female

DRUGS (2)
  1. TACROLLUMS [Concomitant]
  2. MYCOPHENOLIC 360MG TAB DR [Suspect]
     Active Substance: MYCOPHENOLIC ACID
     Dates: start: 201802

REACTIONS (1)
  - Influenza [None]

NARRATIVE: CASE EVENT DATE: 20190116
